FAERS Safety Report 18533787 (Version 1)
Quarter: 2020Q4

REPORT INFORMATION
  Report Type: Spontaneous
  Country: US (occurrence: US)
  Receive Date: 20201120
  Receipt Date: 20201120
  Transmission Date: 20210114
  Serious: Yes (Hospitalization)
  Sender: FDA-Public Use
  Company Number: None

PATIENT
  Age: 35 Year
  Sex: Male

DRUGS (1)
  1. SODIUM PHENY POWDER [Suspect]
     Active Substance: PHENYTOIN SODIUM
     Indication: CEREBRAL PALSY
     Route: 048
     Dates: start: 20180418

REACTIONS (1)
  - Ammonia abnormal [None]

NARRATIVE: CASE EVENT DATE: 20201023
